FAERS Safety Report 7563905-9 (Version None)
Quarter: 2011Q2

REPORT INFORMATION
  Report Type: 
  Country: None (occurrence: None)
  Receive Date: 20110622
  Receipt Date: 20110616
  Transmission Date: 20111010
  Serious: Yes (Life-Threatening, Other)
  Sender: FDA-Public Use
  Company Number: JP-SANOFI-AVENTIS-2010SA069822

PATIENT
  Age: 81 Year
  Sex: Female
  Weight: 41.4 kg

DRUGS (15)
  1. PLAVIX [Suspect]
     Route: 048
     Dates: start: 20100419, end: 20100419
  2. ENALAPRIL MALEATE [Concomitant]
     Indication: CARDIAC FAILURE
     Route: 048
     Dates: start: 20100419
  3. SLOW-K [Concomitant]
     Route: 048
  4. LASIX [Concomitant]
     Route: 048
  5. ASPIRIN [Concomitant]
     Route: 048
     Dates: start: 20100419
  6. HEPARIN SODIUM [Concomitant]
     Dosage: DOSE:15000 UNIT(S)
     Route: 042
     Dates: start: 20100419, end: 20100421
  7. AMBROXOL [Concomitant]
     Route: 048
  8. CODEINE SULFATE [Concomitant]
     Route: 048
  9. MAGNESIUM OXIDE [Concomitant]
     Indication: CONSTIPATION
     Route: 048
     Dates: start: 20100420
  10. ITAVASTATIN [Concomitant]
     Route: 048
     Dates: start: 20100419
  11. LOXOPROFEN SODIUM [Concomitant]
     Route: 048
     Dates: start: 20100419, end: 20100419
  12. PLAVIX [Suspect]
     Route: 048
     Dates: start: 20100420, end: 20100523
  13. ALENDRONATE SODIUM [Concomitant]
     Route: 048
     Dates: start: 20100420, end: 20100515
  14. RANITIDINE HYDROCHLORIDE [Concomitant]
     Indication: PROPHYLAXIS
     Route: 048
     Dates: start: 20100419
  15. PREDNISOLONE [Concomitant]
     Route: 048

REACTIONS (3)
  - PULMONARY EMBOLISM [None]
  - PERIPHERAL ARTERIAL OCCLUSIVE DISEASE [None]
  - IRON DEFICIENCY ANAEMIA [None]
